FAERS Safety Report 9315936 (Version 1)
Quarter: 2013Q2

REPORT INFORMATION
  Report Type: Spontaneous
  Country: CH (occurrence: CH)
  Receive Date: 20130530
  Receipt Date: 20130530
  Transmission Date: 20140414
  Serious: Yes (Other)
  Sender: FDA-Public Use
  Company Number: CH-ROCHE-1229765

PATIENT
  Sex: Male

DRUGS (4)
  1. AVASTIN [Suspect]
     Indication: RECTAL ADENOCARCINOMA
     Route: 042
  2. FOLINIC ACID [Suspect]
     Indication: RECTAL ADENOCARCINOMA
     Route: 065
  3. FLUOROURACIL [Suspect]
     Indication: RECTAL ADENOCARCINOMA
     Route: 065
  4. IRINOTECAN [Suspect]
     Indication: RECTAL ADENOCARCINOMA
     Route: 065

REACTIONS (2)
  - Diarrhoea [Unknown]
  - Herpes zoster [Unknown]
